FAERS Safety Report 8184061-2 (Version None)
Quarter: 2012Q1

REPORT INFORMATION
  Report Type: 
  Country: None (occurrence: None)
  Receive Date: 20120305
  Receipt Date: 20120227
  Transmission Date: 20120608
  Serious: Yes (Death, Other)
  Sender: FDA-Public Use
  Company Number: CHPA2012US003734

PATIENT
  Age: 56 Year
  Sex: Female

DRUGS (4)
  1. ACETAM/DIPHEN CITRATE [Suspect]
     Dosage: UNK, UNK
     Route: 048
  2. DRUG THERAPY NOS [Suspect]
     Dosage: UNK, UNK
     Route: 048
  3. ACETAMINOPHEN W/ PROPOXYPHENE HCL [Suspect]
     Dosage: UNK, UNK
     Route: 048
  4. ACETAMINOPHEN AND HYDROCODONE BITARTRATE [Suspect]
     Dosage: UNK, UNK
     Route: 048

REACTIONS (2)
  - CARDIO-RESPIRATORY ARREST [None]
  - COMPLETED SUICIDE [None]
